FAERS Safety Report 14579487 (Version 2)
Quarter: 2023Q1

REPORT INFORMATION
  Report Type: Spontaneous
  Country: RU (occurrence: RU)
  Receive Date: 20180227
  Receipt Date: 20230330
  Transmission Date: 20230418
  Serious: Yes (Hospitalization, Other)
  Sender: FDA-Public Use
  Company Number: RU-MLMSERVICE-20180215-1073573-1

PATIENT
  Age: 23 Year
  Sex: Female

DRUGS (7)
  1. DEXAMETHASONE [Suspect]
     Active Substance: DEXAMETHASONE
     Indication: Herpes gestationis
     Route: 065
     Dates: start: 2016
  2. DEXAMETHASONE [Suspect]
     Active Substance: DEXAMETHASONE
     Route: 042
     Dates: start: 201610, end: 2016
  3. PREDNISOLONE [Suspect]
     Active Substance: PREDNISOLONE
     Indication: Herpes gestationis
     Dosage: APPROXIMATELY 45 DAYS
     Route: 065
     Dates: start: 201610, end: 201701
  4. PREDNISOLONE [Suspect]
     Active Substance: PREDNISOLONE
     Dosage: REDUCED
     Route: 065
     Dates: start: 2017
  5. PREDNISOLONE [Suspect]
     Active Substance: PREDNISOLONE
     Dosage: INCREASED
     Route: 065
     Dates: start: 2017
  6. METHYLPREDNISOLONE [Suspect]
     Active Substance: METHYLPREDNISOLONE
     Indication: Herpes gestationis
     Dosage: DAILY DOSE BETWEEN 80 MG TO 300 MG FOR 2 WEEKS
     Route: 042
     Dates: start: 20161002, end: 20161015
  7. VITAMINS [Concomitant]
     Active Substance: VITAMINS
     Indication: Product used for unknown indication
     Dates: start: 2016

REACTIONS (5)
  - Cushing^s syndrome [Recovered/Resolved]
  - Osteoporosis [Recovered/Resolved]
  - Spinal fracture [Recovered/Resolved]
  - Myopathy [Recovered/Resolved]
  - Maternal exposure during pregnancy [Unknown]

NARRATIVE: CASE EVENT DATE: 20160101
